FAERS Safety Report 8325431-9 (Version None)
Quarter: 2012Q2

REPORT INFORMATION
  Report Type: 
  Country: None (occurrence: None)
  Receive Date: 20120501
  Receipt Date: 20120417
  Transmission Date: 20120825
  Serious: Yes (Other)
  Sender: FDA-Public Use
  Company Number: PHHY2012PL015069

PATIENT
  Age: 73 Year
  Sex: Male

DRUGS (4)
  1. IMATINIB MESYLATE [Suspect]
     Dosage: 400 MG, DAILY
     Dates: start: 20050101, end: 20070101
  2. DASATINIB [Suspect]
     Dosage: 70 MG, DAILY
     Dates: start: 20081001, end: 20090701
  3. IMATINIB MESYLATE [Suspect]
     Dosage: 600 MG, DAILY
     Dates: end: 20080701
  4. DASATINIB [Suspect]
     Dosage: 100 MG, DAILY
     Dates: start: 20080701

REACTIONS (4)
  - SPLENOMEGALY [None]
  - OEDEMA PERIPHERAL [None]
  - DRUG INEFFECTIVE [None]
  - DYSPEPSIA [None]
